FAERS Safety Report 12771844 (Version 1)
Quarter: 2016Q3

REPORT INFORMATION
  Report Type: Spontaneous
  Country: JP (occurrence: JP)
  Receive Date: 20160922
  Receipt Date: 20160922
  Transmission Date: 20161109
  Serious: Yes (Hospitalization, Disabling, Other)
  Sender: FDA-Public Use
  Company Number: JP-OTSUKA-02100-JPN-00-0006

PATIENT
  Age: 89 Year
  Sex: Male

DRUGS (15)
  1. BUFFERIN [Concomitant]
     Active Substance: ASPIRIN
     Dosage: UNK
     Route: 048
     Dates: start: 20000119
  2. PURSENNID                          /00142207/ [Concomitant]
     Active Substance: SENNOSIDES A AND B
     Indication: PRODUCT USED FOR UNKNOWN INDICATION
     Dosage: UNK
     Route: 048
     Dates: end: 19991219
  3. PURSENNID                          /00142207/ [Concomitant]
     Active Substance: SENNOSIDES A AND B
     Dosage: UNK
     Route: 048
     Dates: start: 20000119
  4. PLETAAL TABLETS 50MG [Suspect]
     Active Substance: CILOSTAZOL
     Dosage: 200 MG, UNK
     Route: 048
     Dates: start: 20000119, end: 20000125
  5. WARFARIN [Concomitant]
     Active Substance: WARFARIN
     Dosage: UNK
     Dates: start: 20000119
  6. PLETAAL TABLETS 50MG [Suspect]
     Active Substance: CILOSTAZOL
     Indication: PERIPHERAL ARTERIAL OCCLUSIVE DISEASE
     Dosage: 100 MG, BID
     Route: 048
     Dates: start: 19980315, end: 19991219
  7. WARFARIN [Concomitant]
     Active Substance: WARFARIN
     Indication: PRODUCT USED FOR UNKNOWN INDICATION
     Dosage: UNK
     Route: 048
     Dates: end: 19991219
  8. LAC B [Concomitant]
     Active Substance: BIFIDOBACTERIUM SPP.
     Dosage: UNK
  9. SERMION                            /00396401/ [Concomitant]
     Active Substance: NICERGOLINE
     Indication: PRODUCT USED FOR UNKNOWN INDICATION
     Dosage: UNK
     Route: 048
     Dates: end: 19991219
  10. BUFFERIN [Concomitant]
     Active Substance: ASPIRIN
     Indication: PRODUCT USED FOR UNKNOWN INDICATION
     Dosage: UNK
     Dates: end: 19991219
  11. METILON [Concomitant]
     Active Substance: METAMIZOLE SODIUM
     Indication: PRODUCT USED FOR UNKNOWN INDICATION
     Dosage: UNK
     Dates: start: 19991217, end: 19991219
  12. SERMION                            /00396401/ [Concomitant]
     Active Substance: NICERGOLINE
     Dosage: UNK
     Route: 048
     Dates: start: 20000119
  13. LAC B [Concomitant]
     Active Substance: BIFIDOBACTERIUM SPP.
     Indication: PRODUCT USED FOR UNKNOWN INDICATION
     Dosage: 1 G, TID
     Route: 048
     Dates: start: 19991208, end: 19991219
  14. WARFARIN [Concomitant]
     Active Substance: WARFARIN
     Dosage: UNK
     Route: 048
     Dates: start: 20000119
  15. VOLTAREN [Concomitant]
     Active Substance: DICLOFENAC SODIUM
     Indication: PRODUCT USED FOR UNKNOWN INDICATION
     Dosage: UNK
     Route: 054
     Dates: start: 19991217, end: 19991219

REACTIONS (4)
  - Arthritis bacterial [Unknown]
  - Thrombocytopenia [Recovered/Resolved]
  - Sepsis [Unknown]
  - Calculus urinary [Unknown]

NARRATIVE: CASE EVENT DATE: 19991219
